FAERS Safety Report 5096965-8 (Version None)
Quarter: 2006Q3

REPORT INFORMATION
  Report Type: 
  Country: None (occurrence: None)
  Receive Date: 20060831
  Receipt Date: 20060831
  Transmission Date: 20061208
  Serious: Yes (Hospitalization)
  Sender: FDA-Public Use
  Company Number: None

PATIENT
  Age: 69 Year
  Sex: Male
  Weight: 109.3169 kg

DRUGS (9)
  1. WARFARIN SODIUM [Suspect]
     Indication: CEREBROVASCULAR ACCIDENT
     Dosage: SEE IMAGE
     Route: 048
     Dates: start: 20010901, end: 20060830
  2. SIMVASTATIN [Concomitant]
  3. TOPIRAMATE [Concomitant]
  4. ATENOLOL [Concomitant]
  5. GEMFIBROZIL [Concomitant]
  6. ROSIGLITAZONE [Concomitant]
  7. POTASSIUM CHLORIDE [Concomitant]
  8. FUROSEMIDE [Concomitant]
  9. GLYBURIDE [Concomitant]

REACTIONS (7)
  - ABDOMINAL DISTENSION [None]
  - DRUG TOXICITY [None]
  - DYSPNOEA EXERTIONAL [None]
  - MELAENA [None]
  - OCCULT BLOOD POSITIVE [None]
  - OEDEMA PERIPHERAL [None]
  - WEIGHT INCREASED [None]
